FAERS Safety Report 12257581 (Version 1)
Quarter: 2016Q2

REPORT INFORMATION
  Report Type: Spontaneous
  Country: CA (occurrence: CA)
  Receive Date: 20160412
  Receipt Date: 20160412
  Transmission Date: 20160815
  Serious: Yes (Other)
  Sender: FDA-Public Use
  Company Number: CA-BAXTER-2016BAX018032

PATIENT
  Sex: Male

DRUGS (2)
  1. 5% DEXTROSE INJECTION [Suspect]
     Active Substance: DEXTROSE
     Indication: OFF LABEL USE
  2. 5% DEXTROSE INJECTION [Suspect]
     Active Substance: DEXTROSE
     Indication: CHELATION THERAPY
     Route: 065

REACTIONS (1)
  - Phlebitis [Unknown]
